FAERS Safety Report 7378224-3 (Version None)
Quarter: 2011Q1

REPORT INFORMATION
  Report Type: 
  Country: None (occurrence: None)
  Receive Date: 20110328
  Receipt Date: 20110317
  Transmission Date: 20110831
  Serious: Yes (Hospitalization, Congenital Anomaly)
  Sender: FDA-Public Use
  Company Number: A0919933A

PATIENT
  Sex: Female
  Weight: 1.7 kg

DRUGS (9)
  1. TYLENOL W/ CODEINE NO. 3 [Concomitant]
  2. PAXIL [Suspect]
     Indication: DEPRESSION
     Dosage: 20MG PER DAY
     Route: 064
     Dates: start: 20040405
  3. WELLBUTRIN [Concomitant]
     Dates: end: 20031103
  4. PROZAC [Concomitant]
     Dates: end: 20040405
  5. COMPAZINE [Concomitant]
  6. LEVOXYL [Concomitant]
  7. PRENATAL VITAMINS [Concomitant]
  8. PROMETHAZINE HCL AND CODEINE [Concomitant]
  9. COLACE [Concomitant]

REACTIONS (2)
  - DRUG EXPOSURE DURING PREGNANCY [None]
  - MICROCEPHALY [None]
